FAERS Safety Report 6768321-5 (Version None)
Quarter: 2010Q2

REPORT INFORMATION
  Report Type: 
  Country: None (occurrence: None)
  Receive Date: 20100614
  Receipt Date: 20100601
  Transmission Date: 20101027
  Serious: Yes (Other)
  Sender: FDA-Public Use
  Company Number: ES-ELI_LILLY_AND_COMPANY-ES201006001205

PATIENT
  Age: 50 Year
  Sex: Female

DRUGS (1)
  1. FORTEO [Suspect]
     Indication: OSTEOPOROSIS
     Dosage: 20 UG/80MCL, UNKNOWN
     Route: 058
     Dates: start: 20100422, end: 20100430

REACTIONS (4)
  - DEPRESSIVE SYMPTOM [None]
  - GINGIVITIS [None]
  - HYPERTHERMIA [None]
  - POLLAKIURIA [None]
